FAERS Safety Report 24321666 (Version 1)
Quarter: 2024Q3

REPORT INFORMATION
  Report Type: Spontaneous
  Country: US (occurrence: US)
  Receive Date: 20240916
  Receipt Date: 20240916
  Transmission Date: 20241017
  Serious: No
  Sender: NOVARTIS
  Company Number: US-002147023-NVSC2024US184293

PATIENT
  Sex: Male

DRUGS (1)
  1. LEQVIO [Suspect]
     Active Substance: INCLISIRAN SODIUM
     Indication: Low density lipoprotein increased
     Dosage: 284 MG (FIRST DOSE 10/10/23, 3 A MONTH LOADING DOSE 1/13/23, EVERY 6 MONTHS THEREAFTER 5/8/23, 6/21/
     Route: 058
     Dates: start: 20231010, end: 20240621

REACTIONS (1)
  - Low density lipoprotein increased [Recovering/Resolving]
